FAERS Safety Report 13620904 (Version 4)
Quarter: 2018Q1

REPORT INFORMATION
  Report Type: Report from Study
  Country: US (occurrence: US)
  Receive Date: 20170607
  Receipt Date: 20180216
  Transmission Date: 20180508
  Serious: Yes (Other)
  Sender: FDA-Public Use
  Company Number: PHEH2017US016755

PATIENT
  Age: 83 Year
  Sex: Female

DRUGS (1)
  1. GLEEVEC [Suspect]
     Active Substance: IMATINIB MESYLATE
     Indication: CHRONIC MYELOID LEUKAEMIA
     Dosage: 400 MG, UNK
     Route: 048
     Dates: end: 201704

REACTIONS (9)
  - Cytopenia [Recovered/Resolved]
  - Anaemia [Unknown]
  - Confusional state [Unknown]
  - Abdominal pain upper [Unknown]
  - Conjunctival haemorrhage [Unknown]
  - Abdominal pain [Unknown]
  - Dementia Alzheimer^s type [Unknown]
  - Fatigue [Recovered/Resolved]
  - Thrombocytopenia [Unknown]

NARRATIVE: CASE EVENT DATE: 20170105
